FAERS Safety Report 15467509 (Version 1)
Quarter: 2018Q4

REPORT INFORMATION
  Report Type: Report from Study
  Country: NO (occurrence: NO)
  Receive Date: 20181005
  Receipt Date: 20181005
  Transmission Date: 20190204
  Serious: Yes (Other)
  Sender: FDA-Public Use
  Company Number: NO-ROCHE-1825678

PATIENT

DRUGS (2)
  1. TOCILIZUMAB. [Suspect]
     Active Substance: TOCILIZUMAB
     Indication: ACUTE MYOCARDIAL INFARCTION
     Dosage: 280 MG OR MATCHING PLACEBO
     Route: 042
  2. TOCILIZUMAB. [Suspect]
     Active Substance: TOCILIZUMAB
     Indication: INFLAMMATION

REACTIONS (4)
  - Infection [Unknown]
  - Myocardial infarction [Unknown]
  - Haemorrhage [Unknown]
  - Cardiac arrest [Unknown]
